FAERS Safety Report 7774154-3 (Version None)
Quarter: 2011Q3

REPORT INFORMATION
  Report Type: 
  Country: None (occurrence: None)
  Receive Date: 20110923
  Receipt Date: 20110919
  Transmission Date: 20111222
  Serious: No
  Sender: FDA-Public Use
  Company Number: JP-JNJFOC-20110903868

PATIENT
  Age: 40 Year
  Sex: Female

DRUGS (4)
  1. NEUROTROPIN [Concomitant]
     Indication: SCIATICA
     Route: 048
     Dates: start: 20110301
  2. FENTANYL CITRATE [Suspect]
     Indication: SCIATICA
     Route: 062
     Dates: start: 20110903, end: 20110905
  3. LYRICA [Concomitant]
     Indication: SCIATICA
     Route: 048
     Dates: start: 20110301
  4. CELECOXIB [Concomitant]
     Indication: SCIATICA
     Route: 048
     Dates: start: 20110301

REACTIONS (3)
  - WRONG TECHNIQUE IN DRUG USAGE PROCESS [None]
  - ECZEMA [None]
  - PRURITUS GENERALISED [None]
